FAERS Safety Report 8918243 (Version 1)
Quarter: 2012Q4

REPORT INFORMATION
  Report Type: 
  Country: US (occurrence: US)
  Receive Date: 20121120
  Receipt Date: 20121120
  Transmission Date: 20130627
  Serious: No
  Sender: FDA-Public Use
  Company Number: US-ASTRAZENECA-2012SE25018

PATIENT
  Age: 84 Year
  Sex: Female
  Weight: 64.9 kg

DRUGS (7)
  1. NEXIUM [Suspect]
     Indication: FLATULENCE
     Route: 048
  2. LISINOPRIL [Suspect]
     Indication: BLOOD PRESSURE ABNORMAL
     Route: 048
  3. CLONIDINE [Concomitant]
     Indication: BLOOD PRESSURE ABNORMAL
  4. NEDOLOL [Concomitant]
     Indication: THYROID DISORDER
  5. GUANFACINE [Concomitant]
     Indication: THYROID DISORDER
  6. TEMAZEPAM [Concomitant]
     Indication: SLEEP DISORDER
  7. OTC MAALOX [Concomitant]

REACTIONS (3)
  - Gastric disorder [Unknown]
  - Off label use [Unknown]
  - Off label use [Unknown]
